FAERS Safety Report 9178520 (Version 1)
Quarter: 2013Q1

REPORT INFORMATION
  Report Type: Spontaneous
  Country: CA (occurrence: CA)
  Receive Date: 20130321
  Receipt Date: 20130321
  Transmission Date: 20140127
  Serious: Yes (Hospitalization)
  Sender: FDA-Public Use
  Company Number: CA-AMGEN-CANSP2013017243

PATIENT
  Age: 90 Year
  Sex: Male

DRUGS (2)
  1. ARANESP [Suspect]
     Indication: LEUKAEMIA
     Dosage: 150 MUG, 2 TIMES/WK
  2. HYDROXYUREA [Concomitant]

REACTIONS (1)
  - Hospitalisation [Recovered/Resolved]
